FAERS Safety Report 7415901-X (Version None)
Quarter: 2011Q2

REPORT INFORMATION
  Report Type: 
  Country: None (occurrence: None)
  Receive Date: 20110414
  Receipt Date: 20110411
  Transmission Date: 20111010
  Serious: Yes (Hospitalization, Disabling, Other)
  Sender: FDA-Public Use
  Company Number: US-PFIZER INC-2011020845

PATIENT
  Sex: Male

DRUGS (5)
  1. FLEXERIL [Concomitant]
     Indication: FIBROMYALGIA
     Dosage: UNK
     Dates: start: 20070101, end: 20101201
  2. FLEXERIL [Concomitant]
     Indication: INSOMNIA
  3. EFFEXOR XR [Concomitant]
     Indication: PAIN
     Dosage: UNK
     Dates: start: 20050901, end: 20080401
  4. CHANTIX [Suspect]
     Indication: SMOKING CESSATION THERAPY
     Dosage: STARTER PACK AND 1 CONTINUATION PACK
     Dates: start: 20070801, end: 20071001
  5. FLEXERIL [Concomitant]
     Indication: PAIN

REACTIONS (11)
  - POST-TRAUMATIC STRESS DISORDER [None]
  - BIPOLAR DISORDER [None]
  - SUICIDAL BEHAVIOUR [None]
  - HOMICIDAL IDEATION [None]
  - AGGRESSION [None]
  - ANXIETY [None]
  - DEPRESSION [None]
  - DELUSION [None]
  - MENTAL DISORDER [None]
  - ACUTE PSYCHOSIS [None]
  - HALLUCINATION [None]
